FAERS Safety Report 8096649-8 (Version None)
Quarter: 2012Q1

REPORT INFORMATION
  Report Type: 
  Country: None (occurrence: None)
  Receive Date: 20120129
  Receipt Date: 20111201
  Transmission Date: 20120608
  Serious: No
  Sender: FDA-Public Use
  Company Number: US-ABBOTT-11P-163-0880109-00

PATIENT
  Age: 69 Year
  Sex: Female

DRUGS (3)
  1. HUMIRA [Suspect]
     Indication: RHEUMATOID ARTHRITIS
  2. TRAMADOL HCL [Concomitant]
     Indication: PAIN
  3. METHOTREXATE [Suspect]
     Indication: ARTHRITIS

REACTIONS (6)
  - PAIN [None]
  - PAIN IN JAW [None]
  - ALOPECIA [None]
  - MUSCLE TWITCHING [None]
  - EAR DISCOMFORT [None]
  - VISION BLURRED [None]
